FAERS Safety Report 21726357 (Version 1)
Quarter: 2022Q4

REPORT INFORMATION
  Report Type: Report from Study
  Country: US (occurrence: US)
  Receive Date: 20221214
  Receipt Date: 20221214
  Transmission Date: 20230112
  Serious: Yes (Other)
  Sender: FDA-Public Use
  Company Number: US-BRISTOL-MYERS SQUIBB COMPANY-2022-089714

PATIENT
  Age: 78 Year
  Sex: Male
  Weight: 65.32 kg

DRUGS (14)
  1. REVLIMID [Suspect]
     Active Substance: LENALIDOMIDE
     Indication: Plasma cell myeloma
     Route: 048
     Dates: start: 202207
  2. REVLIMID [Suspect]
     Active Substance: LENALIDOMIDE
     Dosage: 21 ON 7 DAYS OFF AND REPEAT
     Route: 048
     Dates: start: 202207
  3. DEXAMETHASONE [Concomitant]
     Active Substance: DEXAMETHASONE
  4. VALSARTAN [Concomitant]
     Active Substance: VALSARTAN
  5. AMLODIPINE BESYLATE [Concomitant]
     Active Substance: AMLODIPINE BESYLATE
  6. FLOMAX [Concomitant]
     Active Substance: TAMSULOSIN HYDROCHLORIDE
  7. CALCIUM [Concomitant]
     Active Substance: CALCIUM
  8. MULTIVITAMIN TABLET [Concomitant]
  9. FLAXSEED [Concomitant]
     Active Substance: FLAX SEED
  10. LOW DOSE ASPIRIN [Concomitant]
     Active Substance: ASPIRIN
     Dosage: LOW DOSE ASPIRIN EC 81 MG TABLET DR
  11. VITAMIN D3 [Concomitant]
     Active Substance: CHOLECALCIFEROL
     Dosage: 25 MCG
  12. GLUCOSAMINE [Concomitant]
     Active Substance: GLUCOSAMINE
  13. CHONDROITIN [Concomitant]
     Active Substance: CHONDROITIN
  14. FLONASE ALLERGY RELIEF [Concomitant]
     Active Substance: FLUTICASONE PROPIONATE

REACTIONS (5)
  - Diarrhoea [Unknown]
  - Nausea [Unknown]
  - Fatigue [Recovered/Resolved]
  - Nasopharyngitis [Unknown]
  - Incontinence [Unknown]

NARRATIVE: CASE EVENT DATE: 20220806
